FAERS Safety Report 18681186 (Version 1)
Quarter: 2020Q4

REPORT INFORMATION
  Report Type: Spontaneous
  Country: US (occurrence: US)
  Receive Date: 20201229
  Receipt Date: 20201229
  Transmission Date: 20210114
  Serious: Yes (Hospitalization)
  Sender: FDA-Public Use
  Company Number: None

PATIENT
  Age: 76 Year
  Sex: Male
  Weight: 76.6 kg

DRUGS (7)
  1. BAMLANIVIMAB FOR EUA [Suspect]
     Active Substance: BAMLANIVIMAB
     Indication: COVID-19
     Dates: start: 20201214, end: 20201214
  2. AMLODIPINE [Concomitant]
     Active Substance: AMLODIPINE BESYLATE
  3. CARVEDILOL. [Concomitant]
     Active Substance: CARVEDILOL
  4. MYCOPHENOLATE [Concomitant]
     Active Substance: MYCOPHENOLIC ACID
  5. SIMVASTATIN. [Concomitant]
     Active Substance: SIMVASTATIN
  6. TAMSULOSIN [Concomitant]
     Active Substance: TAMSULOSIN
  7. TACROLIMUS. [Concomitant]
     Active Substance: TACROLIMUS

REACTIONS (6)
  - Cough [None]
  - Fall [None]
  - Intentional product use issue [None]
  - Fatigue [None]
  - Asthenia [None]
  - Skin laceration [None]

NARRATIVE: CASE EVENT DATE: 20201216
